FAERS Safety Report 6623836-5 (Version None)
Quarter: 2010Q1

REPORT INFORMATION
  Report Type: 
  Country: None (occurrence: None)
  Receive Date: 20100310
  Receipt Date: 20100226
  Transmission Date: 20100710
  Serious: Yes (Hospitalization)
  Sender: FDA-Public Use
  Company Number: PHHY2009DE29658

PATIENT
  Sex: Female
  Weight: 78 kg

DRUGS (7)
  1. ACLASTA [Suspect]
     Dosage: UNK
     Route: 042
  2. TORSEMIDE [Concomitant]
     Dosage: 10 MG/DAY
     Route: 048
     Dates: start: 20090601
  3. LYRICA [Concomitant]
     Dosage: 75 MG/DAY
     Route: 048
     Dates: start: 20080101
  4. RAMIPRIL [Concomitant]
     Dosage: 2.5 MG/DAY
     Route: 048
     Dates: start: 20050101
  5. MARCUMAR [Concomitant]
     Dosage: UNK
     Dates: start: 20050101
  6. AMLODIPINE [Concomitant]
     Dosage: 5 MG
     Route: 048
     Dates: start: 20050101
  7. DIPYRONE TAB [Concomitant]
     Dosage: UNK
     Route: 048
     Dates: start: 20070101

REACTIONS (5)
  - CARDIAC FAILURE [None]
  - DECREASED APPETITE [None]
  - DIZZINESS [None]
  - FALL [None]
  - GENERAL PHYSICAL HEALTH DETERIORATION [None]
